FAERS Safety Report 9702334 (Version 1)
Quarter: 2013Q4

REPORT INFORMATION
  Report Type: Spontaneous
  Country: CA (occurrence: CA)
  Receive Date: 20131121
  Receipt Date: 20131121
  Transmission Date: 20140711
  Serious: Yes (Other)
  Sender: FDA-Public Use
  Company Number: CA-009507513-1311CAN009093

PATIENT
  Age: 73 Year
  Sex: Female

DRUGS (4)
  1. SINEMET CR [Suspect]
     Dosage: UNK
     Route: 065
     Dates: start: 201308
  2. ASPIRIN [Concomitant]
  3. LISINOPRIL [Concomitant]
  4. CARBIDOPA (+) LEVODOPA [Concomitant]

REACTIONS (1)
  - Acute hepatic failure [Unknown]
